FAERS Safety Report 10497314 (Version 1)
Quarter: 2014Q4

REPORT INFORMATION
  Report Type: Spontaneous
  Country: CH (occurrence: CH)
  Receive Date: 20141006
  Receipt Date: 20141006
  Transmission Date: 20150528
  Serious: Yes (Life-Threatening, Hospitalization, Congenital Anomaly)
  Sender: FDA-Public Use
  Company Number: PHHY2014CH125928

PATIENT
  Age: 79 Year
  Sex: Female

DRUGS (3)
  1. DIOVAN [Suspect]
     Active Substance: VALSARTAN
     Dosage: 80 MG, QD
     Route: 048
     Dates: start: 20140701, end: 20140719
  2. DIOVAN [Suspect]
     Active Substance: VALSARTAN
     Indication: HYPERTENSION
     Dosage: 40 MG, QD
     Route: 048
     Dates: start: 20140613, end: 20140630
  3. TENORMIN [Concomitant]
     Active Substance: ATENOLOL
     Indication: PRODUCT USED FOR UNKNOWN INDICATION
     Dosage: 12.5 MG, QD
     Route: 048
     Dates: start: 2004

REACTIONS (2)
  - Thrombosis [Recovered/Resolved with Sequelae]
  - Thrombophlebitis [Not Recovered/Not Resolved]

NARRATIVE: CASE EVENT DATE: 201407
